FAERS Safety Report 7892362-8 (Version None)
Quarter: 2011Q4

REPORT INFORMATION
  Report Type: 
  Country: None (occurrence: None)
  Receive Date: 20111103
  Receipt Date: 20111103
  Transmission Date: 20120403
  Serious: Yes (Hospitalization)
  Sender: FDA-Public Use
  Company Number: None

PATIENT
  Age: 70 Year
  Sex: Female
  Weight: 73.9363 kg

DRUGS (9)
  1. METOPROLOL TARTRATE [Concomitant]
  2. NYSTATIN [Concomitant]
  3. TEMOZOLOMIDE [Suspect]
     Indication: GLIOBLASTOMA
     Dosage: XXXMG, PO, QD
     Route: 048
     Dates: start: 20110610
  4. BACTRIM [Concomitant]
  5. CALCIUM CITRATE [Concomitant]
  6. DEXAMETHASONE [Concomitant]
  7. OMEPRAZOLE [Concomitant]
  8. SYNTHROID [Concomitant]
  9. MULTI-VITAMINS [Concomitant]

REACTIONS (7)
  - HYPOXIA [None]
  - UNRESPONSIVE TO STIMULI [None]
  - RETINAL ARTERY EMBOLISM [None]
  - HAEMORRHAGE [None]
  - FALL [None]
  - CONFUSIONAL STATE [None]
  - HEAD INJURY [None]
